FAERS Safety Report 22638427 (Version 1)
Quarter: 2023Q2

REPORT INFORMATION
  Report Type: Spontaneous
  Country: US (occurrence: US)
  Receive Date: 20230626
  Receipt Date: 20230626
  Transmission Date: 20230722
  Serious: No
  Sender: FDA-Public Use
  Company Number: US-SA-SAC20230622000179

PATIENT
  Age: 20 Year
  Sex: Female

DRUGS (9)
  1. DUPIXENT [Suspect]
     Active Substance: DUPILUMAB
     Indication: Dermatitis atopic
     Dosage: 300 MG, QOW
     Route: 058
     Dates: start: 20230301
  2. ALBUTEROL SULFATE [Concomitant]
     Active Substance: ALBUTEROL SULFATE
  3. FLUTICASONE [Concomitant]
     Active Substance: FLUTICASONE
  4. MONTELUKAST [Concomitant]
     Active Substance: MONTELUKAST SODIUM
  5. PHENTERMINE [Concomitant]
     Active Substance: PHENTERMINE
  6. FIBERCON [Concomitant]
     Active Substance: CALCIUM POLYCARBOPHIL
  7. DESONIDE [Concomitant]
     Active Substance: DESONIDE
  8. VITAMINS NOS [Concomitant]
     Active Substance: VITAMINS
  9. PIMECROLIMUS [Concomitant]
     Active Substance: PIMECROLIMUS

REACTIONS (1)
  - Blood insulin increased [Unknown]

NARRATIVE: CASE EVENT DATE: 20230101
